FAERS Safety Report 6310548-0 (Version None)
Quarter: 2009Q3

REPORT INFORMATION
  Report Type: 
  Country: None (occurrence: None)
  Receive Date: 20090814
  Receipt Date: 20090731
  Transmission Date: 20100115
  Serious: Yes (Other)
  Sender: FDA-Public Use
  Company Number: IT-B.I. PHARMACEUTICALS,INC./RIDGEFIELD-2009-DE-05208GD

PATIENT
  Age: 47 Year
  Sex: Male

DRUGS (6)
  1. NEVIRAPINE [Suspect]
     Indication: HIV INFECTION CDC CATEGORY B3
     Dosage: 400 MG
     Dates: start: 20030701, end: 20050501
  2. LAMIVUDINE [Suspect]
     Indication: HIV INFECTION CDC CATEGORY B3
     Dosage: 300 MG
     Dates: start: 20030701, end: 20050501
  3. ZIDOVUDINE [Suspect]
     Indication: HIV INFECTION CDC CATEGORY B3
     Dosage: 300 MG
     Dates: start: 20030701, end: 20050501
  4. STAVUDINE [Suspect]
     Indication: HIV INFECTION CDC CATEGORY B3
     Dosage: 80 MG
     Dates: start: 20030701, end: 20050501
  5. PEGYLATED INTERFERON-ALPHA-2A [Suspect]
     Indication: HEPATITIS C
     Dosage: 180 MCG WEEKLY
     Dates: start: 20040301, end: 20040801
  6. RIBAVIRIN [Suspect]
     Indication: HEPATITIS C
     Dosage: 1000 MG
     Route: 048
     Dates: start: 20040301, end: 20040801

REACTIONS (5)
  - DYSPLASIA [None]
  - IMMUNE RECONSTITUTION SYNDROME [None]
  - LICHENIFICATION [None]
  - LIP ULCERATION [None]
  - MOUTH ULCERATION [None]
